FAERS Safety Report 8826570 (Version 2)
Quarter: 2012Q4

REPORT INFORMATION
  Report Type: 
  Country: US (occurrence: US)
  Receive Date: 20121005
  Receipt Date: 20121025
  Transmission Date: 20130627
  Serious: No
  Sender: FDA-Public Use
  Company Number: US-PFIZER INC-2012246596

PATIENT
  Age: 67 Year
  Sex: Female
  Weight: 71.66 kg

DRUGS (4)
  1. LYRICA [Suspect]
     Indication: FIBROMYALGIA
     Dosage: 75 mg, 3x/day
     Route: 048
     Dates: start: 20121003
  2. LYRICA [Suspect]
     Indication: BACK PAIN
     Dosage: 75 mg, 2x/day
     Route: 048
     Dates: start: 20121003
  3. LYRICA [Suspect]
     Indication: PAIN
  4. FLEXERIL [Concomitant]
     Dosage: 5 mg, UNK

REACTIONS (2)
  - Dizziness [Recovered/Resolved]
  - Somnolence [Recovered/Resolved]
